FAERS Safety Report 7692545-6 (Version None)
Quarter: 2011Q3

REPORT INFORMATION
  Report Type: 
  Country: None (occurrence: None)
  Receive Date: 20110819
  Receipt Date: 20110809
  Transmission Date: 20111222
  Serious: Yes (Hospitalization, Other)
  Sender: FDA-Public Use
  Company Number: US-MERCK-1104USA02225

PATIENT
  Age: 57 Year
  Sex: Female
  Weight: 68 kg

DRUGS (7)
  1. ALENDRONATE SODIUM [Suspect]
     Indication: OSTEOPOROSIS
     Route: 048
     Dates: start: 20080307, end: 20100101
  2. FOSAMAX [Suspect]
     Indication: OSTEOPOROSIS
     Route: 048
     Dates: start: 19970101, end: 20080306
  3. CALCIUM (UNSPECIFIED) [Concomitant]
     Route: 065
  4. VITAMIN E [Concomitant]
     Route: 065
  5. VITAMINS (UNSPECIFIED) [Concomitant]
     Route: 065
  6. VITAMIN D (UNSPECIFIED) [Concomitant]
     Route: 065
  7. OMEGA-3 MARINE TRIGLYCERIDES [Concomitant]
     Route: 065

REACTIONS (26)
  - URINARY TRACT INFECTION [None]
  - BUNION [None]
  - TOOTH DISORDER [None]
  - BURSITIS [None]
  - CATARACT SUBCAPSULAR [None]
  - SKIN LESION [None]
  - SINUS CONGESTION [None]
  - NASAL SEPTUM DEVIATION [None]
  - OSTEOARTHRITIS [None]
  - OSTEOMYELITIS ACUTE [None]
  - COUGH [None]
  - SIALOADENITIS [None]
  - INFECTION [None]
  - FEMUR FRACTURE [None]
  - ANAEMIA POSTOPERATIVE [None]
  - BASAL CELL CARCINOMA [None]
  - HYPERCHOLESTEROLAEMIA [None]
  - PAIN IN EXTREMITY [None]
  - NODULE [None]
  - FRACTURE NONUNION [None]
  - GINGIVAL DISORDER [None]
  - FOOT FRACTURE [None]
  - NON-CARDIAC CHEST PAIN [None]
  - CHOLELITHIASIS [None]
  - POSTOPERATIVE FEVER [None]
  - SALIVARY GLAND ADENOMA [None]
